FAERS Safety Report 17884195 (Version 1)
Quarter: 2020Q2

REPORT INFORMATION
  Report Type: Report from Study
  Country: DE (occurrence: DE)
  Receive Date: 20200611
  Receipt Date: 20200611
  Transmission Date: 20200714
  Serious: Yes (Death, Hospitalization)
  Sender: FDA-Public Use
  Company Number: PHHY2018DE022137

PATIENT
  Sex: Female
  Weight: 88 kg

DRUGS (29)
  1. EXJADE [Suspect]
     Active Substance: DEFERASIROX
     Dosage: 19.2 MG/KG, QD (4 TABLETS OF 360 MG)
     Route: 065
     Dates: start: 20180215, end: 20180605
  2. PROPRANOLOL HYDROCHLORIDE. [Concomitant]
     Active Substance: PROPRANOLOL HYDROCHLORIDE
     Indication: ESSENTIAL TREMOR
     Dosage: 40 MG, QD
     Route: 065
     Dates: start: 20170110, end: 20170118
  3. ONDANSETRON [Concomitant]
     Active Substance: ONDANSETRON
     Indication: NAUSEA
     Dosage: 8 MG, PRN
     Route: 065
     Dates: start: 20170119, end: 20180427
  4. DECITABINA [Concomitant]
     Active Substance: DECITABINE
     Indication: REFRACTORY ANAEMIA WITH RINGED SIDEROBLASTS
     Dosage: 20 MG/M2, QD(FROM DAY 1-5, EVERY 29 DAYS)
     Route: 065
     Dates: start: 20171009, end: 20180427
  5. VIDAZA [Concomitant]
     Active Substance: AZACITIDINE
     Indication: REFRACTORY ANAEMIA WITH RINGED SIDEROBLASTS
     Dosage: 150 MG, QD(ON DAY 1-5 AND REPEAT FROM DAY 29)
     Route: 065
     Dates: start: 20161219, end: 20170212
  6. LEVOFLOXACIN. [Concomitant]
     Active Substance: LEVOFLOXACIN
     Indication: FEBRILE NEUTROPENIA
     Dosage: 500 MG, QD
     Route: 065
     Dates: start: 20170130, end: 20170203
  7. EXJADE [Suspect]
     Active Substance: DEFERASIROX
     Dosage: 14.4 MG/KG (BODY WEIGHT), QD (3 TABLETS OF 360 MG)
     Route: 065
     Dates: start: 20180115, end: 20180214
  8. PARACETAMOL [Concomitant]
     Active Substance: ACETAMINOPHEN
     Indication: PNEUMONIA
     Dosage: 3 G, TID
     Route: 065
     Dates: start: 20180517, end: 20180611
  9. EXJADE [Suspect]
     Active Substance: DEFERASIROX
     Dosage: 8.18 MG/KG (BODY WEIGHT), QD (2 TABLETS OF 360MG)
     Route: 065
     Dates: start: 20170704, end: 20180114
  10. VIDAZA [Concomitant]
     Active Substance: AZACITIDINE
     Dosage: 115 OT, QD (ON DAY 1-5 AND REPEAT FROM DAY 29)
     Route: 065
     Dates: start: 20170213, end: 20170804
  11. PROPRANOLOL HYDROCHLORIDE. [Concomitant]
     Active Substance: PROPRANOLOL HYDROCHLORIDE
     Dosage: 30 MG, TID
     Route: 065
     Dates: start: 20170119, end: 20170427
  12. TAZOBAC [Concomitant]
     Active Substance: PIPERACILLIN SODIUM\TAZOBACTAM SODIUM
     Indication: PNEUMONIA
     Dosage: 13.5 G, TID
     Route: 065
     Dates: start: 20170516, end: 20180524
  13. METOCLOPRAMIDE. [Concomitant]
     Active Substance: METOCLOPRAMIDE
     Indication: NAUSEA
     Dosage: 30 MG, TID
     Route: 065
     Dates: start: 20180509, end: 20180525
  14. CAPHOSOL [Concomitant]
     Active Substance: CALCIUM CHLORIDE\SODIUM CHLORIDE\SODIUM PHOSPHATE, DIBASIC, ANHYDROUS\SODIUM PHOSPHATE, MONOBASIC, ANHYDROUS
     Indication: MUCOSAL INFLAMMATION
     Dosage: UNK UNK, QID
     Route: 065
     Dates: start: 20180509, end: 20180606
  15. EXJADE [Suspect]
     Active Substance: DEFERASIROX
     Indication: MYELODYSPLASTIC SYNDROME
     Dosage: 4.09 MG/KG (BODY WEIGHT), QD (1 TABLET OF 360MG)
     Route: 065
     Dates: start: 20170104, end: 20170213
  16. METFORMIN [Concomitant]
     Active Substance: METFORMIN HYDROCHLORIDE
     Indication: TYPE 2 DIABETES MELLITUS
     Dosage: 2550 MG, TID
     Route: 065
     Dates: end: 20170130
  17. CIPROBAY [Concomitant]
     Indication: CHOLECYSTITIS ACUTE
     Dosage: 500 MG, BID
     Route: 065
     Dates: start: 20171103, end: 20171107
  18. ACICLOVIR [Concomitant]
     Active Substance: ACYCLOVIR
     Indication: HERPES SIMPLEX
     Dosage: 2250 MG, QD
     Route: 042
     Dates: start: 20180524, end: 20180611
  19. EXJADE [Suspect]
     Active Substance: DEFERASIROX
     Dosage: UNK
     Route: 065
     Dates: start: 20170214, end: 20170313
  20. EXJADE [Suspect]
     Active Substance: DEFERASIROX
     Dosage: 4.39 MG/KG (BODY WEIGHT), QD (360MG 1 TABLET)
     Route: 065
     Dates: start: 20170314, end: 20170703
  21. NEORECORMON [Concomitant]
     Active Substance: ERYTHROPOIETIN
     Indication: REFRACTORY ANAEMIA WITH RINGED SIDEROBLASTS
     Dosage: 30000 UNK, QW (EVERY WEEK)
     Route: 065
     Dates: start: 20161219
  22. FOSFOMYCIN [Concomitant]
     Active Substance: FOSFOMYCIN
     Indication: CYSTITIS
     Dosage: UNK
     Route: 065
     Dates: start: 20170416, end: 20170430
  23. VOMEX A [Concomitant]
     Active Substance: DIMENHYDRINATE
     Indication: NAUSEA
     Dosage: 50 MG, PRN
     Route: 065
     Dates: start: 20170119, end: 20180427
  24. METFORMIN [Concomitant]
     Active Substance: METFORMIN HYDROCHLORIDE
     Dosage: 1700 MG, BID
     Route: 065
     Dates: start: 20170131, end: 20180605
  25. CIPROBAY [Concomitant]
     Indication: CHOLELITHIASIS
  26. CIPROFLOXACIN. [Concomitant]
     Active Substance: CIPROFLOXACIN
     Indication: URINARY TRACT INFECTION
     Dosage: 800 MG, QD
     Route: 042
     Dates: start: 20180605, end: 20180611
  27. PIPERACILLIN. [Concomitant]
     Active Substance: PIPERACILLIN SODIUM
     Indication: FEBRILE NEUTROPENIA
     Dosage: 4.5 G, TID
     Route: 065
     Dates: start: 20170125, end: 20170130
  28. TAZOBAC [Concomitant]
     Active Substance: PIPERACILLIN SODIUM\TAZOBACTAM SODIUM
     Indication: INFECTION
     Dosage: 13.5 G, TID
     Route: 042
     Dates: start: 20170516
  29. MEROPENEM. [Concomitant]
     Active Substance: MEROPENEM
     Indication: PNEUMONIA
     Dosage: 3 G, QD
     Route: 065
     Dates: start: 20180605, end: 20180611

REACTIONS (4)
  - Humerus fracture [Recovered/Resolved]
  - Death [Fatal]
  - Pain [Unknown]
  - Fall [Unknown]

NARRATIVE: CASE EVENT DATE: 20180201
